FAERS Safety Report 9305145 (Version 3)
Quarter: 2013Q3

REPORT INFORMATION
  Report Type: Report from Study
  Country: AU (occurrence: AU)
  Receive Date: 20130523
  Receipt Date: 20130806
  Transmission Date: 20140515
  Serious: Yes (Hospitalization, Other)
  Sender: FDA-Public Use
  Company Number: PHHY2013AU051032

PATIENT
  Age: 37 Year
  Sex: Male

DRUGS (6)
  1. CLOZARIL [Suspect]
     Indication: SCHIZOPHRENIA
     Dosage: 500 MG, UNK
     Dates: start: 20050601, end: 20130520
  2. CLOZARIL [Suspect]
     Dosage: 400 MG, UNK
     Route: 048
     Dates: start: 20130523, end: 20130730
  3. ASPIRIN [Concomitant]
     Dosage: 10 MG, MANE
     Route: 048
  4. ATORVASTATIN [Concomitant]
     Dosage: 80 MG, NOCTE
  5. CLOPIDOGREL [Concomitant]
     Dosage: 75 MG, MANE
  6. METOPROLOL [Concomitant]
     Dosage: 50 MG, BID

REACTIONS (11)
  - Cardiac disorder [Not Recovered/Not Resolved]
  - Coronary artery disease [Unknown]
  - Left ventricular dysfunction [Unknown]
  - Coronary artery stenosis [Not Recovered/Not Resolved]
  - Ventricular hypokinesia [Unknown]
  - Impaired self-care [Unknown]
  - Blood creatine phosphokinase increased [Unknown]
  - White blood cell count increased [Unknown]
  - Cognitive disorder [Unknown]
  - Neutrophil count increased [Unknown]
  - Lymphocyte count increased [Unknown]
